FAERS Safety Report 20698321 (Version 1)
Quarter: 2022Q2

REPORT INFORMATION
  Report Type: Spontaneous
  Country: US (occurrence: US)
  Receive Date: 20220412
  Receipt Date: 20220412
  Transmission Date: 20220721
  Serious: No
  Sender: FDA-Public Use
  Company Number: US-TEVA-2022-US-2018380

PATIENT

DRUGS (2)
  1. AMPHETAMINE SULFATE\DEXTROAMPHETAMINE [Suspect]
     Active Substance: AMPHETAMINE SULFATE\DEXTROAMPHETAMINE
     Indication: Attention deficit hyperactivity disorder
     Route: 065
  2. AMPHETAMINE SULFATE\DEXTROAMPHETAMINE [Suspect]
     Active Substance: AMPHETAMINE SULFATE\DEXTROAMPHETAMINE
     Indication: Narcolepsy

REACTIONS (11)
  - Therapeutic product effect incomplete [Unknown]
  - Fatigue [Unknown]
  - Headache [Unknown]
  - Depressed mood [Unknown]
  - Dry eye [Unknown]
  - Dry mouth [Unknown]
  - Feeling abnormal [Unknown]
  - Asthenia [Unknown]
  - Hypersomnia [Unknown]
  - Disturbance in attention [Unknown]
  - Insomnia [Unknown]
